FAERS Safety Report 24720944 (Version 1)
Quarter: 2024Q4

REPORT INFORMATION
  Report Type: Report from Study
  Country: US (occurrence: US)
  Receive Date: 20241211
  Receipt Date: 20241211
  Transmission Date: 20250115
  Serious: Yes (Other)
  Sender: ABBVIE
  Company Number: US-ABBVIE-5885158

PATIENT
  Age: 59 Year
  Sex: Female
  Weight: 63 kg

DRUGS (2)
  1. HUMIRA [Suspect]
     Active Substance: ADALIMUMAB
     Indication: Psoriatic arthropathy
     Route: 058
     Dates: start: 20230124, end: 202401
  2. HUMIRA [Suspect]
     Active Substance: ADALIMUMAB
     Route: 058
     Dates: start: 202402

REACTIONS (7)
  - Coronary artery occlusion [Recovered/Resolved]
  - Memory impairment [Recovered/Resolved]
  - Hypoaesthesia [Recovered/Resolved]
  - Dysgraphia [Recovered/Resolved]
  - Cerebrovascular accident [Recovered/Resolved]
  - Musculoskeletal disorder [Recovered/Resolved]
  - Aphasia [Recovered/Resolved]

NARRATIVE: CASE EVENT DATE: 20240101
